FAERS Safety Report 8186289-4 (Version None)
Quarter: 2012Q1

REPORT INFORMATION
  Report Type: 
  Country: None (occurrence: None)
  Receive Date: 20120301
  Receipt Date: 20120221
  Transmission Date: 20120608
  Serious: Yes (Hospitalization)
  Sender: FDA-Public Use
  Company Number: AUR-APL-2012-01063

PATIENT
  Age: 63 Year
  Sex: Female

DRUGS (6)
  1. IBUPROFEN [Suspect]
     Indication: PRODUCT USED FOR UNKNOWN INDICATION
     Dosage: 1200 MG (400 MG,3 IN 1 D),ORAL
     Route: 048
  2. DOCUSATE (DOCUSATE) [Concomitant]
  3. ALENDRONIC ACID (ALENDRONIC ACID) [Suspect]
     Indication: OSTEOPOROSIS
     Dosage: 10 MG (70 MG,1 IN 1 WK),ORAL
     Route: 048
  4. ADCAL-D3 (LEKOVIT CA) [Concomitant]
  5. NULYTELY [Concomitant]
  6. PAROVEN (TROXERUTIN) [Concomitant]

REACTIONS (3)
  - RECTAL HAEMORRHAGE [None]
  - OESOPHAGEAL ULCER [None]
  - DUODENAL ULCER HAEMORRHAGE [None]
